FAERS Safety Report 7770382-1 (Version None)
Quarter: 2011Q3

REPORT INFORMATION
  Report Type: 
  Country: None (occurrence: None)
  Receive Date: 20110922
  Receipt Date: 20100817
  Transmission Date: 20111222
  Serious: No
  Sender: FDA-Public Use
  Company Number: US-ASTRAZENECA-2010SE38584

PATIENT
  Sex: Male
  Weight: 73.5 kg

DRUGS (2)
  1. SEROQUEL XR [Suspect]
     Indication: ATTENTION DEFICIT/HYPERACTIVITY DISORDER
     Route: 048
  2. SEROQUEL XR [Suspect]
     Indication: AGITATION
     Route: 048

REACTIONS (2)
  - FATIGUE [None]
  - FEELING ABNORMAL [None]
